FAERS Safety Report 9017607 (Version 2)
Quarter: 2013Q3

REPORT INFORMATION
  Report Type: Spontaneous
  Country: DE (occurrence: DE)
  Receive Date: 20130117
  Receipt Date: 20130716
  Transmission Date: 20140515
  Serious: Yes (Death, Life-Threatening, Hospitalization)
  Sender: FDA-Public Use
  Company Number: DE-B.I. PHARMACEUTICALS,INC./RIDGEFIELD-2013-DE-00106DE

PATIENT
  Age: 82 Year
  Sex: Male

DRUGS (6)
  1. PRADAXA [Suspect]
     Indication: ATRIAL FIBRILLATION
     Dosage: 220 MG
     Dates: start: 20120101, end: 20120110
  2. BELOC ZOC [Concomitant]
     Dosage: 190 NR
  3. DELIX [Concomitant]
     Dosage: 2.5 NR
  4. TAMSULOSIN [Concomitant]
  5. EUTHYROX [Concomitant]
  6. VITAPLUS [Concomitant]

REACTIONS (3)
  - Pneumonia [Fatal]
  - Cerebrovascular accident [Unknown]
  - Cerebrovascular accident [Unknown]
